FAERS Safety Report 23980382 (Version 1)
Quarter: 2024Q2

REPORT INFORMATION
  Report Type: Spontaneous
  Country: FR (occurrence: FR)
  Receive Date: 20240617
  Receipt Date: 20240617
  Transmission Date: 20240716
  Serious: Yes (Hospitalization)
  Sender: FDA-Public Use
  Company Number: None

PATIENT
  Age: 36 Year
  Sex: Female

DRUGS (14)
  1. BROMAZEPAM [Suspect]
     Active Substance: BROMAZEPAM
     Indication: Depressive symptom
     Dosage: 6MGX 6/D?DAILY DOSE: 36 MILLIGRAM
     Route: 048
     Dates: start: 2024
  2. BROMAZEPAM [Suspect]
     Active Substance: BROMAZEPAM
     Indication: Brain fog
     Dosage: 6MGX 6/D?DAILY DOSE: 36 MILLIGRAM
     Route: 048
     Dates: start: 2024
  3. OLANZAPINE [Suspect]
     Active Substance: OLANZAPINE
     Indication: Insomnia
     Dosage: 5MG + 5MG IF NEEDED
  4. MODAFINIL [Suspect]
     Active Substance: MODAFINIL
     Dosage: UP TO 600 MG PER DAY (EITHER ALONE OR IN COMBINATION WITH QUASYM, CONCERTA, MODAFINIL)
     Route: 048
     Dates: start: 2024, end: 202405
  5. METHYLPHENIDATE HYDROCHLORIDE [Suspect]
     Active Substance: METHYLPHENIDATE HYDROCHLORIDE
     Indication: Suicide attempt
     Dosage: UP TO 600 MG PER DAY (EITHER ALONE OR IN COMBINATION WITH QUASYM, CONCERTA, MODAFINIL)
     Route: 048
     Dates: start: 202302, end: 20240516
  6. CONCERTA [Suspect]
     Active Substance: METHYLPHENIDATE HYDROCHLORIDE
     Dosage: UP TO 600 MG PER DAY (EITHER ALONE OR IN COMBINATION WITH QUASYM, CONCERTA, MODAFINIL)
     Route: 048
     Dates: start: 2024, end: 202405
  7. OXAZEPAM [Suspect]
     Active Substance: OXAZEPAM
     Indication: Depressive symptom
     Dosage: 3/DAY?DAILY DOSE: 150 MILLIGRAM
     Route: 048
     Dates: start: 2024, end: 202405
  8. LOXAPINE [Suspect]
     Active Substance: LOXAPINE
     Indication: Depressive symptom
     Dosage: 20MG AT BEDTIME?DAILY DOSE: 20 MILLIGRAM
  9. DIAZEPAM [Suspect]
     Active Substance: DIAZEPAM
     Indication: Depressive symptom
     Dosage: 10 MG 2X/DAY?DAILY DOSE: 20 MILLIGRAM
  10. BUSPIRONE [Suspect]
     Active Substance: BUSPIRONE HYDROCHLORIDE
     Indication: Depressive symptom
  11. NEBIVOLOL [Suspect]
     Active Substance: NEBIVOLOL
     Indication: Depressive symptom
  12. BILASTINE [Suspect]
     Active Substance: BILASTINE
     Indication: Depressive symptom
  13. NICOTINELL [Suspect]
     Active Substance: NICOTINE
     Indication: Depressive symptom
  14. COCAINE [Concomitant]
     Active Substance: COCAINE
     Indication: Suicide attempt
     Dosage: 10/2022 - ONGOING, 4G PER DAY 2-4 TIMES PER WEEK

REACTIONS (5)
  - Toxicity to various agents [Unknown]
  - Drug use disorder [Recovering/Resolving]
  - Intentional product misuse [Unknown]
  - Off label use [Recovered/Resolved]
  - Drug intolerance [Recovered/Resolved]

NARRATIVE: CASE EVENT DATE: 20230201
